FAERS Safety Report 4612093-7 (Version None)
Quarter: 2005Q2

REPORT INFORMATION
  Report Type: 
  Country: None (occurrence: None)
  Receive Date: 20050308
  Receipt Date: 20041223
  Transmission Date: 20051028
  Serious: Yes (Other)
  Sender: FDA-Public Use
  Company Number: 2004UW26111

PATIENT
  Age: 68 Year
  Sex: Female
  Weight: 56.245 kg

DRUGS (5)
  1. CRESTOR [Suspect]
     Indication: BLOOD TRIGLYCERIDES INCREASED
     Dosage: 10 MG PO
     Route: 048
  2. NADOLOL [Concomitant]
  3. MAXZIDE [Concomitant]
  4. ACIPHEX [Concomitant]
  5. ESTRACE [Concomitant]

REACTIONS (2)
  - BLOOD CREATININE INCREASED [None]
  - BLOOD UREA INCREASED [None]
